FAERS Safety Report 6841341-8 (Version None)
Quarter: 2010Q3

REPORT INFORMATION
  Report Type: 
  Country: None (occurrence: None)
  Receive Date: 20100714
  Receipt Date: 20070813
  Transmission Date: 20110219
  Serious: No
  Sender: FDA-Public Use
  Company Number: US-PFIZER INC-2007051771

PATIENT
  Sex: Male
  Weight: 95.3 kg

DRUGS (22)
  1. CHANTIX [Suspect]
     Indication: SMOKING CESSATION THERAPY
     Dates: start: 20070601
  2. CELLCEPT [Concomitant]
  3. ZOCOR [Concomitant]
  4. NEORAL [Concomitant]
  5. LOPID [Concomitant]
  6. PERSANTINE [Concomitant]
  7. HUMALOG [Concomitant]
  8. LANTUS [Concomitant]
  9. FLONASE [Concomitant]
  10. LORATADINE [Concomitant]
     Dosage: 10/500 MG
  11. TYLENOL [Concomitant]
  12. MAGNESIUM OXIDE [Concomitant]
  13. PREDNISONE TAB [Concomitant]
  14. VALIUM [Concomitant]
  15. FOLIC ACID [Concomitant]
  16. NORVASC [Concomitant]
  17. ACETYLSALICYLIC ACID [Concomitant]
  18. ELAVIL [Concomitant]
  19. ZANTAC [Concomitant]
  20. VASOTEC [Concomitant]
  21. XALATAN [Concomitant]
  22. XANAX [Concomitant]

REACTIONS (4)
  - ABNORMAL DREAMS [None]
  - BLOOD CREATININE INCREASED [None]
  - NAUSEA [None]
  - PRODUCTIVE COUGH [None]
